FAERS Safety Report 21195805 (Version 3)
Quarter: 2022Q4

REPORT INFORMATION
  Report Type: Report from Study
  Country: CN (occurrence: CN)
  Receive Date: 20220810
  Receipt Date: 20221111
  Transmission Date: 20230113
  Serious: Yes (Hospitalization)
  Sender: FDA-Public Use
  Company Number: CN-PFIZER INC-PV202200038864

PATIENT
  Age: 63 Year
  Sex: Female
  Weight: 47 kg

DRUGS (5)
  1. PACLITAXEL [Suspect]
     Active Substance: PACLITAXEL
     Indication: Ovarian cancer
     Dosage: 129 MG, WEEKLY (QW)
     Route: 042
     Dates: start: 20220322, end: 20220329
  2. AFURESERTIB [Suspect]
     Active Substance: AFURESERTIB
     Indication: Ovarian cancer
     Dosage: 125 MG, 1X/DAY (QD), TABLET
     Route: 048
     Dates: start: 20220322, end: 20220406
  3. AFURESERTIB [Suspect]
     Active Substance: AFURESERTIB
     Dosage: 125 MG, 1X/DAY (QD), TABLET
     Route: 048
     Dates: start: 20220411
  4. GRANULOCYTE COLONY-STIMULATING FACTOR NOS [Concomitant]
     Active Substance: GRANULOCYTE COLONY-STIMULATING FACTOR NOS
     Indication: White blood cell count decreased
     Dosage: 300 UG
     Route: 058
     Dates: start: 20220406, end: 20220406
  5. GRANULOCYTE COLONY-STIMULATING FACTOR NOS [Concomitant]
     Active Substance: GRANULOCYTE COLONY-STIMULATING FACTOR NOS
     Indication: Neutrophil count decreased

REACTIONS (1)
  - Abdominal distension [Recovered/Resolved]

NARRATIVE: CASE EVENT DATE: 20220331
